FAERS Safety Report 13366231 (Version 1)
Quarter: 2017Q1

REPORT INFORMATION
  Report Type: Spontaneous
  Country: FR (occurrence: FR)
  Receive Date: 20170323
  Receipt Date: 20170323
  Transmission Date: 20170429
  Serious: Yes (Other)
  Sender: FDA-Public Use
  Company Number: FR-SA-2017SA048050

PATIENT
  Age: 72 Year
  Sex: Male

DRUGS (4)
  1. MOZOBIL [Suspect]
     Active Substance: PLERIXAFOR
     Route: 065
     Dates: start: 20170307, end: 20170307
  2. G-CSF [Concomitant]
     Active Substance: GRANULOCYTE COLONY-STIMULATING FACTOR NOS
     Indication: TRANSPLANT
     Dates: start: 20170307, end: 20170307
  3. MOZOBIL [Suspect]
     Active Substance: PLERIXAFOR
     Route: 065
     Dates: start: 20170310, end: 20170310
  4. G-CSF [Concomitant]
     Active Substance: GRANULOCYTE COLONY-STIMULATING FACTOR NOS
     Indication: TRANSPLANT
     Dates: start: 20170310, end: 20170310

REACTIONS (6)
  - Therapeutic response decreased [Unknown]
  - Heart rate increased [Recovering/Resolving]
  - Blood pressure decreased [Recovering/Resolving]
  - Arrhythmia supraventricular [Recovering/Resolving]
  - Atrial fibrillation [Recovering/Resolving]
  - Extrasystoles [Recovering/Resolving]

NARRATIVE: CASE EVENT DATE: 20170307
